FAERS Safety Report 24786252 (Version 1)
Quarter: 2024Q4

REPORT INFORMATION
  Report Type: Spontaneous
  Country: CH (occurrence: CH)
  Receive Date: 20241229
  Receipt Date: 20241229
  Transmission Date: 20250115
  Serious: Yes (Other)
  Sender: ABBVIE
  Company Number: CH-JNJFOC-20241242167

PATIENT
  Sex: Male

DRUGS (1)
  1. IMBRUVICA [Suspect]
     Active Substance: IBRUTINIB
     Indication: Product used for unknown indication
     Route: 048

REACTIONS (7)
  - Chest discomfort [Unknown]
  - Dyspnoea [Unknown]
  - Fatigue [Unknown]
  - Headache [Unknown]
  - Dyslipidaemia [Unknown]
  - Arrhythmia [Unknown]
  - Hypertension [Unknown]
